FAERS Safety Report 6276290-X (Version None)
Quarter: 2009Q3

REPORT INFORMATION
  Report Type: 
  Country: None (occurrence: None)
  Receive Date: 20090722
  Receipt Date: 20090715
  Transmission Date: 20100115
  Serious: Yes (Life-Threatening, Hospitalization, Disabling)
  Sender: FDA-Public Use
  Company Number: US-JNJFOC-20070306339

PATIENT
  Sex: Female
  Weight: 64 kg

DRUGS (2)
  1. ORTHO EVRA [Suspect]
     Indication: CONTRACEPTION
     Route: 062
  2. LORTAB [Concomitant]

REACTIONS (19)
  - AFFECTIVE DISORDER [None]
  - ANTIPHOSPHOLIPID ANTIBODIES POSITIVE [None]
  - ATRIAL SEPTAL DEFECT [None]
  - BASAL GANGLIA HAEMORRHAGE [None]
  - BRAIN HERNIATION [None]
  - CHEST PAIN [None]
  - COGNITIVE DISORDER [None]
  - DEEP VEIN THROMBOSIS [None]
  - DEMENTIA [None]
  - DEPRESSION [None]
  - ELECTROCARDIOGRAM T WAVE INVERSION [None]
  - EMBOLIC STROKE [None]
  - ILLUSION [None]
  - ISCHAEMIC STROKE [None]
  - LOSS OF CONSCIOUSNESS [None]
  - REFUSAL OF TREATMENT BY PATIENT [None]
  - SINUS TACHYCARDIA [None]
  - TOBACCO USER [None]
  - WEIGHT DECREASED [None]
